FAERS Safety Report 7269483-6 (Version None)
Quarter: 2011Q1

REPORT INFORMATION
  Report Type: 
  Country: None (occurrence: None)
  Receive Date: 20110202
  Receipt Date: 20101222
  Transmission Date: 20110831
  Serious: Yes (Other)
  Sender: FDA-Public Use
  Company Number: US-BAYER-200941447NA

PATIENT
  Sex: Female

DRUGS (5)
  1. YASMIN [Suspect]
     Indication: UTERINE LEIOMYOMA
  2. YASMIN [Suspect]
     Indication: VAGINAL HAEMORRHAGE
  3. AZOR [Concomitant]
     Indication: BLOOD PRESSURE ABNORMAL
     Dosage: ONCE DAILY
  4. YAZ [Suspect]
     Indication: VAGINAL HAEMORRHAGE
  5. YAZ [Suspect]
     Indication: UTERINE LEIOMYOMA

REACTIONS (4)
  - UTERINE ENLARGEMENT [None]
  - CHOLECYSTITIS CHRONIC [None]
  - ABDOMINAL HERNIA OBSTRUCTIVE [None]
  - CHOLELITHIASIS [None]
